FAERS Safety Report 7535564-2 (Version None)
Quarter: 2011Q2

REPORT INFORMATION
  Report Type: 
  Country: None (occurrence: None)
  Receive Date: 20110601
  Receipt Date: 20110516
  Transmission Date: 20111010
  Serious: Yes (Hospitalization)
  Sender: FDA-Public Use
  Company Number: 2011VX001400

PATIENT
  Age: 44 Year
  Sex: Female
  Weight: 60 kg

DRUGS (3)
  1. VENLAFAXINE [Suspect]
     Indication: DEPRESSION
     Dosage: 4.5 GM
  2. LAMOTRIGINE [Suspect]
     Indication: DEPRESSION
     Dosage: 20 GM
  3. DIAZEPAM [Suspect]
     Indication: DEPRESSION
     Dosage: 200 MG

REACTIONS (2)
  - UNRESPONSIVE TO STIMULI [None]
  - SEROTONIN SYNDROME [None]
